FAERS Safety Report 9248361 (Version 4)
Quarter: 2014Q4

REPORT INFORMATION
  Report Type: Spontaneous
  Country: US (occurrence: US)
  Receive Date: 20130423
  Receipt Date: 20141106
  Transmission Date: 20150529
  Serious: Yes (Hospitalization, Other)
  Sender: FDA-Public Use
  Company Number: US-BAYER-2013-050143

PATIENT
  Age: 30 Year
  Sex: Female
  Weight: 74.83 kg

DRUGS (1)
  1. MIRENA [Suspect]
     Active Substance: LEVONORGESTREL
     Indication: CONTRACEPTION
     Dosage: 20 MCG/24HR, CONT
     Route: 015
     Dates: start: 201008, end: 20100901

REACTIONS (13)
  - Uterine perforation [None]
  - Device dislocation [None]
  - Loss of consciousness [None]
  - Pain [None]
  - Feeling abnormal [None]
  - Anhedonia [None]
  - Dizziness [None]
  - Injury [None]
  - Nausea [None]
  - Syncope [None]
  - Emotional distress [None]
  - Fall [None]
  - Inflammation [None]

NARRATIVE: CASE EVENT DATE: 201008
